FAERS Safety Report 8374329-9 (Version None)
Quarter: 2012Q2

REPORT INFORMATION
  Report Type: 
  Country: None (occurrence: None)
  Receive Date: 20120521
  Receipt Date: 20120510
  Transmission Date: 20120825
  Serious: Yes (Other)
  Sender: FDA-Public Use
  Company Number: JP-ASTRAZENECA-2012SE16457

PATIENT
  Age: 30 Year
  Sex: Female

DRUGS (1)
  1. MARCAINE [Suspect]
     Indication: SPINAL ANAESTHESIA
     Route: 029

REACTIONS (3)
  - INTENTIONAL DRUG MISUSE [None]
  - HYPERAESTHESIA [None]
  - HYPOAESTHESIA [None]
